FAERS Safety Report 8522719-3 (Version None)
Quarter: 2012Q3

REPORT INFORMATION
  Report Type: 
  Country: None (occurrence: None)
  Receive Date: 20120719
  Receipt Date: 20120718
  Transmission Date: 20120928
  Serious: Yes (Hospitalization)
  Sender: FDA-Public Use
  Company Number: TR-GLAXOSMITHKLINE-B0811651A

PATIENT
  Age: 50 Year
  Sex: Male

DRUGS (4)
  1. LITHIUM CARBONATE [Suspect]
     Indication: BIPOLAR DISORDER
     Dosage: 900MG PER DAY
     Route: 048
     Dates: start: 20120612, end: 20120627
  2. VALPROATE SODIUM [Concomitant]
     Dosage: 1250MG PER DAY
     Dates: start: 20101001
  3. SEROQUEL [Concomitant]
     Dosage: 300MG PER DAY
     Dates: start: 20101001
  4. WELLBUTRIN [Suspect]
     Indication: DEPRESSION
     Dosage: 150MG PER DAY
     Route: 048
     Dates: start: 20120514, end: 20120627

REACTIONS (3)
  - PERICARDIAL EFFUSION [None]
  - OEDEMA PERIPHERAL [None]
  - VENOUS INSUFFICIENCY [None]
